FAERS Safety Report 22939904 (Version 3)
Quarter: 2023Q4

REPORT INFORMATION
  Report Type: Report from Study
  Country: US (occurrence: US)
  Receive Date: 20230913
  Receipt Date: 20231025
  Transmission Date: 20240109
  Serious: Yes (Other)
  Sender: FDA-Public Use
  Company Number: US-INCYTE CORPORATION-2023IN006855

PATIENT

DRUGS (4)
  1. INCB-000928 [Suspect]
     Active Substance: INCB-000928
     Indication: Anaemia
     Dosage: 200 MILLIGRAM, QD
     Route: 048
     Dates: start: 20220823, end: 20230921
  2. INCB-000928 [Suspect]
     Active Substance: INCB-000928
     Indication: Myelofibrosis
     Dosage: 400 MILLIGRAM, QD
     Route: 048
     Dates: start: 20230922
  3. RUXOLITINIB [Suspect]
     Active Substance: RUXOLITINIB
     Indication: Anaemia
     Dosage: 15 MILLIGRAM, BID
     Route: 048
     Dates: start: 20220823
  4. RUXOLITINIB [Suspect]
     Active Substance: RUXOLITINIB
     Indication: Myelofibrosis

REACTIONS (1)
  - Squamous cell carcinoma [Recovered/Resolved]

NARRATIVE: CASE EVENT DATE: 20230328
